FAERS Safety Report 10079407 (Version 1)
Quarter: 2014Q2

REPORT INFORMATION
  Report Type: Spontaneous
  Country: None (occurrence: US)
  Receive Date: 20140415
  Receipt Date: 20140415
  Transmission Date: 20141212
  Serious: No
  Sender: FDA-Public Use
  Company Number: US-TEVA-475662USA

PATIENT
  Sex: Female

DRUGS (2)
  1. COPAXONE 40 MG [Suspect]
  2. COPAXONE 40 MG [Suspect]

REACTIONS (4)
  - Immediate post-injection reaction [Unknown]
  - Hypersensitivity [Unknown]
  - Chest discomfort [Unknown]
  - Throat tightness [Unknown]
